FAERS Safety Report 9098091 (Version 2)
Quarter: 2013Q1

REPORT INFORMATION
  Report Type: Spontaneous
  Country: US (occurrence: US)
  Receive Date: 20130213
  Receipt Date: 20130312
  Transmission Date: 20140127
  Serious: Yes (Hospitalization)
  Sender: FDA-Public Use
  Company Number: US-ELI_LILLY_AND_COMPANY-US201302001816

PATIENT
  Sex: Male

DRUGS (6)
  1. HUMULIN NPH [Suspect]
     Indication: DIABETES MELLITUS
     Dosage: UNK, PRN
     Dates: start: 2003, end: 20130119
  2. HUMULIN NPH [Suspect]
     Indication: DIABETES MELLITUS
     Dosage: 40 U, EACH MORNING
     Dates: start: 20130117
  3. HUMULIN NPH [Suspect]
     Dosage: 10 U, EACH EVENING
     Dates: start: 20130117
  4. LISINOPRIL [Concomitant]
  5. DONEPEZIL [Concomitant]
  6. ADVAIR [Concomitant]

REACTIONS (7)
  - Pneumonia [Unknown]
  - Cystitis [Unknown]
  - Hypertension [Unknown]
  - Cerebrovascular accident [Unknown]
  - Decreased appetite [Unknown]
  - Blood glucose decreased [Unknown]
  - Injection site pain [Unknown]
